FAERS Safety Report 4633926-4 (Version None)
Quarter: 2005Q2

REPORT INFORMATION
  Report Type: 
  Country: None (occurrence: None)
  Receive Date: 20050412
  Receipt Date: 20050412
  Transmission Date: 20051028
  Serious: Yes (Other)
  Sender: FDA-Public Use
  Company Number: None

PATIENT
  Age: 12 Month
  Sex: Male

DRUGS (6)
  1. TPA [Suspect]
     Indication: PLEURAL EFFUSION
     Dosage: INTRAPLEURAL
     Route: 034
     Dates: start: 20050314
  2. TPA [Suspect]
     Indication: PNEUMONIA STREPTOCOCCAL
     Dosage: INTRAPLEURAL
     Route: 034
     Dates: start: 20050314
  3. FENTANYL [Concomitant]
  4. VERSED [Concomitant]
  5. EPOGEN [Concomitant]
  6. .. [Concomitant]

REACTIONS (3)
  - BLOODY DISCHARGE [None]
  - HAEMOGLOBIN DECREASED [None]
  - SECRETION DISCHARGE [None]
